FAERS Safety Report 11880249 (Version 2)
Quarter: 2016Q1

REPORT INFORMATION
  Report Type: Spontaneous
  Country: JP (occurrence: JP)
  Receive Date: 20151230
  Receipt Date: 20160119
  Transmission Date: 20160526
  Serious: Yes (Other)
  Sender: FDA-Public Use
  Company Number: JP-GLAXOSMITHKLINE-JP2015JPN182674

PATIENT
  Age: 84 Year
  Sex: Male

DRUGS (3)
  1. STAYBLA [Suspect]
     Active Substance: IMIDAFENACIN
     Indication: POLLAKIURIA
     Dosage: UNK
     Route: 048
     Dates: start: 20151221
  2. URIEF [Concomitant]
     Active Substance: SILODOSIN
     Dosage: UNK
  3. AVOLVE [Suspect]
     Active Substance: DUTASTERIDE
     Indication: BENIGN PROSTATIC HYPERPLASIA
     Dosage: UNK
     Route: 048
     Dates: end: 20151207

REACTIONS (1)
  - Urinary retention [Not Recovered/Not Resolved]

NARRATIVE: CASE EVENT DATE: 20151225
